FAERS Safety Report 9111299 (Version 1)
Quarter: 2013Q1

REPORT INFORMATION
  Report Type: Spontaneous
  Country: US (occurrence: US)
  Receive Date: 20130219
  Receipt Date: 20130219
  Transmission Date: 20140127
  Serious: No
  Sender: FDA-Public Use
  Company Number: US-BRISTOL-MYERS SQUIBB COMPANY-16314577

PATIENT
  Age: 56 Year
  Sex: Female

DRUGS (2)
  1. ORENCIA FOR INJ [Suspect]
     Indication: RHEUMATOID ARTHRITIS
     Dosage: NO OF INF:4,LAST INF ON 21DEC11?RECEIVED LOADING DOSE ON NOV2011
     Route: 042
     Dates: start: 20111017
  2. TRAMADOL [Concomitant]

REACTIONS (3)
  - Rheumatoid arthritis [Unknown]
  - Fall [Unknown]
  - Vomiting [Unknown]
